FAERS Safety Report 7594181-9 (Version None)
Quarter: 2011Q3

REPORT INFORMATION
  Report Type: 
  Country: None (occurrence: None)
  Receive Date: 20110706
  Receipt Date: 20110624
  Transmission Date: 20111222
  Serious: Yes (Other)
  Sender: FDA-Public Use
  Company Number: PHHY2011JP53698

PATIENT
  Age: 64 Year
  Sex: Female

DRUGS (3)
  1. ZOMETA [Suspect]
     Indication: METASTASES TO BONE
     Dosage: 4 MG, QMO
     Dates: start: 20060601, end: 20070101
  2. AREDIA [Suspect]
     Indication: METASTASES TO BONE
     Dosage: 90 MG, QMO
     Dates: start: 20050301, end: 20060101
  3. ZOMETA [Suspect]
     Dosage: 3 MG, QMO
     Dates: start: 20070101

REACTIONS (7)
  - PURULENT DISCHARGE [None]
  - OSTEONECROSIS OF JAW [None]
  - PAIN IN JAW [None]
  - IMPLANT SITE SWELLING [None]
  - DENTAL FISTULA [None]
  - EXPOSED BONE IN JAW [None]
  - RESORPTION BONE INCREASED [None]
